FAERS Safety Report 9251496 (Version 2)
Quarter: 2013Q2

REPORT INFORMATION
  Report Type: Spontaneous
  Country: CA (occurrence: CA)
  Receive Date: 20130424
  Receipt Date: 20130517
  Transmission Date: 20140414
  Serious: Yes (Life-Threatening, Hospitalization, Other)
  Sender: FDA-Public Use
  Company Number: CA-PFIZER INC-2013112816

PATIENT
  Age: 59 Year
  Sex: Female
  Weight: 68.03 kg

DRUGS (7)
  1. AXITINIB [Suspect]
     Indication: RENAL CANCER METASTATIC
     Dosage: 5 MG, 2X/DAY
     Route: 048
     Dates: start: 20130306, end: 20130413
  2. PERCOCET [Suspect]
     Dosage: 2 TABLET EVERY 6 HOURS AS NEEDED
     Route: 048
     Dates: start: 2012
  3. OLMESARTAN [Concomitant]
     Indication: HYPERTENSION
     Dosage: 20 MG, 1X/DAY
     Route: 048
     Dates: start: 2012
  4. RABEPRAZOLE [Concomitant]
     Indication: GASTROOESOPHAGEAL REFLUX DISEASE
     Dosage: 20 MG, 1X/DAY
     Dates: start: 2012
  5. COLCHICINE [Concomitant]
     Indication: GOUT
     Dosage: 0.68 MG, UNK
     Dates: start: 2012
  6. SYNTHROID [Concomitant]
     Indication: HYPOTHYROIDISM
     Dosage: 0.075 MG, UNK
  7. ALLOPURINOL [Concomitant]
     Indication: GOUT
     Dosage: 50 MG, 1X/DAY

REACTIONS (1)
  - Drug-induced liver injury [Recovered/Resolved]
